FAERS Safety Report 4347343-8 (Version None)
Quarter: 2004Q2

REPORT INFORMATION
  Report Type: 
  Country: None (occurrence: None)
  Receive Date: 20040426
  Receipt Date: 20040426
  Transmission Date: 20050107
  Serious: Yes (Life-Threatening)
  Sender: FDA-Public Use
  Company Number: None

PATIENT
  Age: 49 Year
  Sex: Male
  Weight: 83.4619 kg

DRUGS (6)
  1. LEVAQUIN [Suspect]
     Indication: BRONCHITIS
     Dosage: 1 TABLET Q24HRS ORAL
     Route: 048
     Dates: start: 20040423, end: 20040423
  2. LEVAQUIN [Suspect]
     Indication: PATHOGEN RESISTANCE
     Dosage: 1 TABLET Q24HRS ORAL
     Route: 048
     Dates: start: 20040423, end: 20040423
  3. LIPITOR [Concomitant]
  4. TOPROL-XL [Concomitant]
  5. BIAXIN XL [Concomitant]
  6. HYCODAN COUGH SUPPRESSANT [Concomitant]

REACTIONS (1)
  - HYPERSENSITIVITY [None]
